FAERS Safety Report 16830034 (Version 6)
Quarter: 2019Q4

REPORT INFORMATION
  Report Type: Spontaneous
  Country: CA (occurrence: CA)
  Receive Date: 20190919
  Receipt Date: 20191209
  Transmission Date: 20200122
  Serious: Yes (Other)
  Sender: FDA-Public Use
  Company Number: CA-CELLTRION INC.-2019CA024380

PATIENT

DRUGS (7)
  1. INFLECTRA [Suspect]
     Active Substance: INFLIXIMAB-DYYB
     Indication: CROHN^S DISEASE
     Dosage: 400 MG, WEEK 0, 2, 6 WEEKS, THEN EVERY 8 WEEKS)
     Route: 042
     Dates: start: 20190813
  2. INFLECTRA [Suspect]
     Active Substance: INFLIXIMAB-DYYB
     Dosage: 248 MG, UNK
     Route: 042
     Dates: start: 20190925
  3. PREDNISONE. [Concomitant]
     Active Substance: PREDNISONE
     Dosage: 60 MG, 1X/DAY
     Route: 048
     Dates: start: 20190711
  4. INFLECTRA [Suspect]
     Active Substance: INFLIXIMAB-DYYB
     Dosage: 400 MG, WEEK 0, 2, 6 WEEKS, THEN EVERY 8 WEEKS
     Route: 042
     Dates: start: 20190925
  5. INFLECTRA [Suspect]
     Active Substance: INFLIXIMAB-DYYB
     Dosage: 400 MG, WEEK 0, 2, 6 WEEKS, THEN EVERY 8 WEEKS)
     Route: 042
     Dates: start: 20190828
  6. VANCOMYCIN HYDROCHLORIDE. [Concomitant]
     Active Substance: VANCOMYCIN HYDROCHLORIDE
     Dosage: 125 MG, UNK (QID FOR 10 DAYS)
     Route: 065
     Dates: start: 201910
  7. INFLECTRA [Suspect]
     Active Substance: INFLIXIMAB-DYYB
     Dosage: 400 MG, WEEK 0, 2, 6 WEEKS, THEN EVERY 8 WEEKS)
     Route: 042
     Dates: start: 20191125

REACTIONS (14)
  - Dizziness [Unknown]
  - Diarrhoea [Unknown]
  - Chest discomfort [Recovered/Resolved]
  - Periorbital swelling [Unknown]
  - Poor venous access [Unknown]
  - Muscle spasms [Unknown]
  - Blood pressure fluctuation [Unknown]
  - Fatigue [Unknown]
  - Dyspnoea [Recovered/Resolved]
  - Incorrect dose administered [Unknown]
  - Syncope [Unknown]
  - Clostridium difficile infection [Unknown]
  - Malaise [Unknown]
  - Urinary tract infection [Recovering/Resolving]

NARRATIVE: CASE EVENT DATE: 2019
